FAERS Safety Report 20216575 (Version 1)
Quarter: 2021Q4

REPORT INFORMATION
  Report Type: Spontaneous
  Country: US (occurrence: US)
  Receive Date: 20211222
  Receipt Date: 20211222
  Transmission Date: 20220303
  Serious: No
  Sender: FDA-Public Use
  Company Number: US-BEH-2021139702

PATIENT
  Sex: Female

DRUGS (7)
  1. PRIVIGEN [Suspect]
     Active Substance: HUMAN IMMUNOGLOBULIN G
     Indication: Chronic inflammatory demyelinating polyradiculoneuropathy
     Dosage: 65 GRAM, EVERY 7 WEEKS
     Route: 042
  2. BUPROPION HYDROCHLORIDE [Concomitant]
     Active Substance: BUPROPION HYDROCHLORIDE
  3. DULOXETINE [Concomitant]
     Active Substance: DULOXETINE
  4. FINASTERIDE [Concomitant]
     Active Substance: FINASTERIDE
  5. NOVOLOG [Concomitant]
     Active Substance: INSULIN ASPART
  6. NUVIGIL [Concomitant]
     Active Substance: ARMODAFINIL
  7. RAMIPRIL [Concomitant]
     Active Substance: RAMIPRIL

REACTIONS (5)
  - Laryngitis [Unknown]
  - Balance disorder [Unknown]
  - Muscular weakness [Unknown]
  - Muscular weakness [Unknown]
  - Paraesthesia [Unknown]
